FAERS Safety Report 12401342 (Version 3)
Quarter: 2017Q1

REPORT INFORMATION
  Report Type: Spontaneous
  Country: JP (occurrence: JP)
  Receive Date: 20160525
  Receipt Date: 20170106
  Transmission Date: 20170428
  Serious: Yes (Hospitalization, Other)
  Sender: FDA-Public Use
  Company Number: JP-VALIDUS PHARMACEUTICALS LLC-JP-2016VAL001590

PATIENT
  Age: 66 Year
  Sex: Female

DRUGS (2)
  1. FUROSEMIDE. [Suspect]
     Active Substance: FUROSEMIDE
     Indication: UTERINE CANCER
     Dosage: 10 MG, ONCE
     Route: 040
  2. CISPLATIN. [Concomitant]
     Active Substance: CISPLATIN
     Indication: UTERINE CANCER
     Dosage: 40 MG/M2, UNK
     Route: 041

REACTIONS (3)
  - Computerised tomogram abnormal [Unknown]
  - Ureteric rupture [Unknown]
  - Abdominal pain [Unknown]
